FAERS Safety Report 8616692-7 (Version None)
Quarter: 2012Q3

REPORT INFORMATION
  Report Type: 
  Country: None (occurrence: None)
  Receive Date: 20120823
  Receipt Date: 20120802
  Transmission Date: 20120928
  Serious: No
  Sender: FDA-Public Use
  Company Number: US-009507513-1208USA002004

PATIENT

DRUGS (10)
  1. REBETOL [Concomitant]
  2. VITAMIN D [Concomitant]
     Dosage: HIGH CAP POTENCY
  3. PEGASYS [Concomitant]
     Dosage: 180MCG/M
  4. VICTRELIS [Suspect]
     Indication: HEPATITIS C
     Dosage: 800 MG, TID
     Route: 048
  5. DIPHENHYDRAMINE CITRATE [Concomitant]
  6. ACETAMINOFEN [Concomitant]
     Dosage: 160/5ML
  7. PROCRIT [Concomitant]
     Dosage: 10000/ML
  8. IBUPROFEN [Concomitant]
  9. RECLAST [Concomitant]
     Dosage: INJ 5/100ML
  10. CALCIUM CARBONATE [Concomitant]

REACTIONS (1)
  - ANAEMIA [None]
